FAERS Safety Report 12428601 (Version 1)
Quarter: 2016Q2

REPORT INFORMATION
  Report Type: Spontaneous
  Country: US (occurrence: US)
  Receive Date: 20160602
  Receipt Date: 20160602
  Transmission Date: 20160815
  Serious: No
  Sender: FDA-Public Use
  Company Number: US-BAUSCH-BL-2016-004767

PATIENT
  Sex: Female
  Weight: 61.29 kg

DRUGS (1)
  1. ELIDEL [Suspect]
     Active Substance: PIMECROLIMUS
     Indication: SKIN DISORDER
     Dosage: APPLIED ONCE AT NIGHT TO THE UPPER EYELIDS, BELOW THE EYEBROWS
     Route: 061
     Dates: start: 20160223, end: 20160225

REACTIONS (3)
  - Eyelids pruritus [Recovered/Resolved]
  - Eyelid oedema [Recovered/Resolved]
  - Erythema of eyelid [Recovered/Resolved]

NARRATIVE: CASE EVENT DATE: 20160223
